FAERS Safety Report 6856425-8 (Version None)
Quarter: 2010Q3

REPORT INFORMATION
  Report Type: 
  Country: None (occurrence: None)
  Receive Date: 20100719
  Receipt Date: 20100706
  Transmission Date: 20110219
  Serious: Yes (Other)
  Sender: FDA-Public Use
  Company Number: PHHY2010CA43367

PATIENT
  Sex: Female

DRUGS (1)
  1. ACLASTA [Suspect]
     Indication: OSTEOPOROSIS
     Dosage: 5 MG ONCE A YEAR
     Route: 042
     Dates: start: 20100621

REACTIONS (19)
  - BONE SWELLING [None]
  - CHEST DISCOMFORT [None]
  - DISCOMFORT [None]
  - DYSPHAGIA [None]
  - EAR PAIN [None]
  - EYE PAIN [None]
  - EYELID OEDEMA [None]
  - FATIGUE [None]
  - FEELING ABNORMAL [None]
  - LYMPHADENOPATHY [None]
  - MALAISE [None]
  - MUSCLE STRAIN [None]
  - OVERDOSE [None]
  - PAIN IN EXTREMITY [None]
  - PAIN IN JAW [None]
  - SENSATION OF FOREIGN BODY [None]
  - SWELLING [None]
  - TEMPOROMANDIBULAR JOINT SYNDROME [None]
  - TOOTHACHE [None]
